FAERS Safety Report 22896661 (Version 3)
Quarter: 2023Q4

REPORT INFORMATION
  Report Type: Report from Study
  Country: JP (occurrence: JP)
  Receive Date: 20230901
  Receipt Date: 20231027
  Transmission Date: 20240110
  Serious: No
  Sender: FDA-Public Use
  Company Number: JP-BIOGEN-2023BI01222975

PATIENT
  Age: 63 Year
  Sex: Male
  Weight: 74.7 kg

DRUGS (8)
  1. ADUCANUMAB [Suspect]
     Active Substance: ADUCANUMAB
     Indication: Dementia Alzheimer^s type
     Dosage: TITRATION PERIOD
     Route: 050
     Dates: start: 20230516, end: 20230516
  2. ADUCANUMAB [Suspect]
     Active Substance: ADUCANUMAB
     Dosage: TITRATION PERIOD
     Route: 050
     Dates: start: 20230614, end: 20230614
  3. ADUCANUMAB [Suspect]
     Active Substance: ADUCANUMAB
     Dosage: TITRATION PERIOD
     Route: 050
     Dates: start: 20230712, end: 20230712
  4. ADUCANUMAB [Suspect]
     Active Substance: ADUCANUMAB
     Dosage: TITRATION PERIOD
     Route: 050
     Dates: start: 20230809, end: 20230809
  5. FLORQUINITAU [Suspect]
     Active Substance: FLORQUINITAU
     Indication: Positron emission tomogram
     Route: 050
     Dates: start: 20230525, end: 20230525
  6. DONEPEZIL [Concomitant]
     Active Substance: DONEPEZIL
     Route: 050
     Dates: start: 202009
  7. AMLODIPINE BESYLATE [Concomitant]
     Active Substance: AMLODIPINE BESYLATE
     Route: 050
     Dates: start: 202205
  8. FEBUXOSTAT [Concomitant]
     Active Substance: FEBUXOSTAT
     Route: 050
     Dates: start: 202203

REACTIONS (1)
  - Amyloid related imaging abnormality-microhaemorrhages and haemosiderin deposits [Recovered/Resolved]

NARRATIVE: CASE EVENT DATE: 20230823
